FAERS Safety Report 9175122 (Version 1)
Quarter: 2013Q1

REPORT INFORMATION
  Report Type: Spontaneous
  Country: US (occurrence: US)
  Receive Date: 20130320
  Receipt Date: 20130320
  Transmission Date: 20140127
  Serious: Yes (Hospitalization)
  Sender: FDA-Public Use
  Company Number: US-ASTRAZENECA-2013SE16375

PATIENT
  Age: 63 Year
  Sex: Female
  Weight: 104.3 kg

DRUGS (18)
  1. LISINOPRIL [Suspect]
     Route: 048
  2. NEXIUM [Interacting]
     Indication: GASTROOESOPHAGEAL REFLUX DISEASE
     Route: 048
     Dates: start: 2009
  3. PROMETHAZINE [Interacting]
     Route: 065
  4. LANTUS [Concomitant]
     Indication: DIABETES MELLITUS
     Dosage: 80U AM
  5. HUMALOG [Concomitant]
     Indication: DIABETES MELLITUS
  6. ASPIRIN [Concomitant]
     Indication: BLOOD CHOLESTEROL INCREASED
  7. CARBAZEPINE [Concomitant]
     Indication: CONVULSION
  8. CARBAZEPINE [Concomitant]
     Indication: CONVULSION
     Dosage: REDUCED DOSE
  9. GABAPENTIN [Concomitant]
     Indication: CONVULSION
  10. GABAPENTIN [Concomitant]
     Indication: CONVULSION
     Dosage: REDUCED DOSE
  11. DETROL LA [Concomitant]
     Indication: BLADDER DYSFUNCTION
     Dosage: DAILY
  12. ALBUTEROL [Concomitant]
     Indication: BRONCHITIS
     Dosage: PRN
  13. ADVAIR [Concomitant]
     Indication: BRONCHITIS
     Dosage: DAILY
  14. SPIRIVA [Concomitant]
     Indication: BRONCHITIS
     Dosage: DAILY
  15. LIDODERM [Concomitant]
     Indication: ARTHRITIS
  16. ASTEPRA [Concomitant]
     Indication: SINUSITIS
  17. LIPITOR [Concomitant]
  18. FUROSEMIDE [Concomitant]
     Indication: HYPERTENSION

REACTIONS (9)
  - Drug interaction [Unknown]
  - Dehydration [Unknown]
  - Nausea [Unknown]
  - Vomiting [Unknown]
  - Chapped lips [Unknown]
  - Weight decreased [Unknown]
  - Constipation [Unknown]
  - Sinusitis [Unknown]
  - Nasopharyngitis [Unknown]
